FAERS Safety Report 12254994 (Version 2)
Quarter: 2016Q2

REPORT INFORMATION
  Report Type: Report from Study
  Country: RO (occurrence: RO)
  Receive Date: 20160411
  Receipt Date: 20160527
  Transmission Date: 20160815
  Serious: Yes (Hospitalization)
  Sender: FDA-Public Use
  Company Number: RO-ABBVIE-16P-135-1600953-00

PATIENT
  Age: 58 Year
  Sex: Male

DRUGS (5)
  1. VIEKIRAX [Suspect]
     Active Substance: OMBITASVIR\PARITAPREVIR\RITONAVIR
     Indication: HEPATIC CIRRHOSIS
     Dosage: 2-0-0
     Route: 048
     Dates: start: 20160406, end: 20160407
  2. EXVIERA [Suspect]
     Active Substance: DASABUVIR
     Indication: HEPATIC CIRRHOSIS
     Dosage: 1-0-1
     Route: 048
     Dates: start: 20160407, end: 20160407
  3. RIBAVIRIN. [Suspect]
     Active Substance: RIBAVIRIN
     Indication: HEPATIC CIRRHOSIS
     Route: 048
     Dates: start: 20160406, end: 20160407
  4. EXVIERA [Suspect]
     Active Substance: DASABUVIR
     Dosage: 1-0-1
     Route: 048
     Dates: start: 20160505, end: 20160522
  5. VIEKIRAX [Suspect]
     Active Substance: OMBITASVIR\PARITAPREVIR\RITONAVIR
     Dosage: 2-0-0
     Route: 048
     Dates: start: 20160505, end: 20160522

REACTIONS (3)
  - Upper gastrointestinal haemorrhage [Recovered/Resolved]
  - Faeces discoloured [Recovering/Resolving]
  - Upper gastrointestinal haemorrhage [Unknown]

NARRATIVE: CASE EVENT DATE: 20160406
